FAERS Safety Report 5031024-1 (Version None)
Quarter: 2006Q2

REPORT INFORMATION
  Report Type: 
  Country: None (occurrence: None)
  Receive Date: 20060504
  Receipt Date: 20060202
  Transmission Date: 20061013
  Serious: No
  Sender: FDA-Public Use
  Company Number: 200610647BWH

PATIENT
  Age: 65 Year
  Sex: Male

DRUGS (1)
  1. LEVITRA [Suspect]
     Dosage: 2.5 MG, TOTAL DAILY, ORAL
     Route: 048

REACTIONS (2)
  - BLOOD PRESSURE INCREASED [None]
  - HEART RATE INCREASED [None]
